FAERS Safety Report 15545343 (Version 3)
Quarter: 2019Q2

REPORT INFORMATION
  Report Type: Spontaneous
  Country: US (occurrence: US)
  Receive Date: 20181024
  Receipt Date: 20190620
  Transmission Date: 20190711
  Serious: No
  Sender: FDA-Public Use
  Company Number: US-PFIZER INC-2018433244

PATIENT
  Age: 49 Year
  Sex: Female

DRUGS (1)
  1. XELJANZ [Suspect]
     Active Substance: TOFACITINIB CITRATE
     Indication: RHEUMATOID ARTHRITIS
     Dosage: 10 MG, TWICE DAILY (2 TABLETS IN THE MORNING AND 2 TABLETS IN THE AFTERNOON)
     Route: 048
     Dates: start: 201606

REACTIONS (2)
  - Full blood count increased [Unknown]
  - Off label use [Unknown]

NARRATIVE: CASE EVENT DATE: 201606
